FAERS Safety Report 7371648-X (Version None)
Quarter: 2011Q1

REPORT INFORMATION
  Report Type: 
  Country: None (occurrence: None)
  Receive Date: 20110324
  Receipt Date: 20110317
  Transmission Date: 20110831
  Serious: Yes (Other)
  Sender: FDA-Public Use
  Company Number: US-PFIZER INC-2011060119

PATIENT
  Age: 43 Year
  Sex: Male

DRUGS (4)
  1. VANCOMYCIN HCL [Suspect]
     Indication: PSEUDOMEMBRANOUS COLITIS
     Dosage: 250 MG, ONE IN 6 HRS
     Route: 048
     Dates: start: 20110202
  2. VANCOMYCIN HCL [Suspect]
     Indication: CLOSTRIDIAL INFECTION
  3. FLAGYL [Suspect]
     Indication: PSEUDOMEMBRANOUS COLITIS
     Dosage: 500 MG, ONE IN 6 HRS
     Route: 048
     Dates: start: 20110202, end: 20110207
  4. FLAGYL [Suspect]
     Indication: CLOSTRIDIAL INFECTION

REACTIONS (2)
  - SWEAT DISCOLOURATION [None]
  - DIARRHOEA [None]
